FAERS Safety Report 13018184 (Version 1)
Quarter: 2016Q4

REPORT INFORMATION
  Report Type: Spontaneous
  Country: CN (occurrence: CN)
  Receive Date: 20161212
  Receipt Date: 20161212
  Transmission Date: 20170207
  Serious: Yes (Other)
  Sender: FDA-Public Use
  Company Number: CN-PFIZER INC-2016571854

PATIENT
  Age: 48 Year
  Sex: Male
  Weight: 50 kg

DRUGS (3)
  1. CLOZAPINE. [Suspect]
     Active Substance: CLOZAPINE
     Indication: SCHIZOPHRENIA
     Dosage: 125 MG, 2X/DAY
     Route: 048
     Dates: start: 20160518, end: 20161020
  2. ZOLOFT [Suspect]
     Active Substance: SERTRALINE HYDROCHLORIDE
     Indication: SCHIZOPHRENIA
     Dosage: 100 MG, 1X/DAY (EVERY MORNING)
     Route: 048
     Dates: start: 20160518, end: 20161020
  3. SULPIRIDE [Suspect]
     Active Substance: SULPIRIDE
     Indication: SCHIZOPHRENIA
     Dosage: 200 MG, 2X/DAY
     Route: 048
     Dates: start: 20160518, end: 20161020

REACTIONS (1)
  - Ileus [Recovering/Resolving]

NARRATIVE: CASE EVENT DATE: 20160812
